FAERS Safety Report 8123943-4 (Version None)
Quarter: 2012Q1

REPORT INFORMATION
  Report Type: 
  Country: None (occurrence: None)
  Receive Date: 20120209
  Receipt Date: 20120126
  Transmission Date: 20120608
  Serious: Yes (Hospitalization)
  Sender: FDA-Public Use
  Company Number: US-JNJFOC-20111204377

PATIENT
  Age: 36 Year
  Sex: Female
  Weight: 46.5 kg

DRUGS (5)
  1. DEXTROMETHORPHAN HYDROBROMIDE [Suspect]
     Indication: PRODUCT USED FOR UNKNOWN INDICATION
  2. NAPROXEN [Suspect]
     Indication: PRODUCT USED FOR UNKNOWN INDICATION
  3. ACETAMINOPHEN [Suspect]
     Indication: PRODUCT USED FOR UNKNOWN INDICATION
     Route: 065
  4. ACETAMINOPHEN [Suspect]
     Route: 065
  5. CITALOPRAM [Concomitant]
     Indication: PRODUCT USED FOR UNKNOWN INDICATION

REACTIONS (4)
  - VOMITING [None]
  - ABDOMINAL DISCOMFORT [None]
  - INTENTIONAL SELF-INJURY [None]
  - MULTIPLE DRUG OVERDOSE INTENTIONAL [None]
